FAERS Safety Report 6444301-4 (Version None)
Quarter: 2009Q4

REPORT INFORMATION
  Report Type: 
  Country: None (occurrence: None)
  Receive Date: 20091118
  Receipt Date: 20091113
  Transmission Date: 20100525
  Serious: Yes (Death, Hospitalization)
  Sender: FDA-Public Use
  Company Number: PHHY2009CA21052

PATIENT
  Sex: Female

DRUGS (1)
  1. SANDOSTATIN LAR [Suspect]
     Indication: SCLERODERMA
     Dosage: 10 MG, QMO
     Route: 030
     Dates: start: 20081129, end: 20090418

REACTIONS (2)
  - DEATH [None]
  - MALAISE [None]
